FAERS Safety Report 9508113 (Version 1)
Quarter: 2013Q1

REPORT INFORMATION
  Report Type: Spontaneous
  Country: US (occurrence: None)
  Receive Date: 20130305
  Receipt Date: 20130305
  Transmission Date: 20140127
  Serious: Yes (Other)
  Sender: FDA-Public Use
  Company Number: 163-21880-12021148

PATIENT
  Age: 75 Year
  Sex: Male
  Weight: 74.84 kg

DRUGS (2)
  1. REVLIMID (LENALIDOMIDE) (15 MILLIGRAM, CAPSULES) [Suspect]
     Indication: PLASMA CELL MYELOMA
     Dosage: DAILY, MON -FRI
     Route: 048
     Dates: start: 200904
  2. DEXAMETHASONE (DEXAMETHASONE) [Concomitant]

REACTIONS (1)
  - Contusion [None]
